FAERS Safety Report 7767422-2 (Version None)
Quarter: 2011Q3

REPORT INFORMATION
  Report Type: 
  Country: None (occurrence: None)
  Receive Date: 20110922
  Receipt Date: 20100816
  Transmission Date: 20111222
  Serious: Yes (Other)
  Sender: FDA-Public Use
  Company Number: US-ASTRAZENECA-2010SE24296

PATIENT
  Age: 7051 Day
  Sex: Male
  Weight: 71.4 kg

DRUGS (4)
  1. PHENARGAN [Concomitant]
     Indication: NAUSEA
  2. SEROQUEL XR [Suspect]
     Indication: POOR QUALITY SLEEP
     Route: 048
  3. SEROQUEL XR [Suspect]
     Indication: DEPRESSION
     Route: 048
  4. XANAX [Concomitant]
     Indication: ANXIETY

REACTIONS (1)
  - CONVULSION [None]
